FAERS Safety Report 8213134-0 (Version None)
Quarter: 2012Q1

REPORT INFORMATION
  Report Type: 
  Country: None (occurrence: None)
  Receive Date: 20120315
  Receipt Date: 20120314
  Transmission Date: 20120608
  Serious: Yes (Life-Threatening, Hospitalization, Other)
  Sender: FDA-Public Use
  Company Number: JP-ABBOTT-11P-087-0870953-00

PATIENT
  Sex: Female

DRUGS (11)
  1. MESALAMINE [Concomitant]
     Indication: CROHN'S DISEASE
     Route: 048
     Dates: start: 20090929
  2. CETIRIZINE HYDROCHLORIDE [Concomitant]
     Indication: ALLERGY PROPHYLAXIS
     Route: 048
     Dates: start: 20090930
  3. HUMIRA [Suspect]
     Indication: CROHN'S DISEASE
     Route: 058
     Dates: start: 20110223, end: 20110223
  4. PREDNISOLONE [Concomitant]
     Indication: PRODUCT USED FOR UNKNOWN INDICATION
     Dates: end: 20110501
  5. HUMIRA [Suspect]
     Dates: start: 20110308, end: 20110308
  6. BIFIDOBACTERIUM [Concomitant]
     Indication: CROHN'S DISEASE
     Route: 048
     Dates: start: 20090930
  7. HUMIRA [Suspect]
     Dates: start: 20110322, end: 20111018
  8. AZATHIOPRINE [Concomitant]
     Indication: CROHN'S DISEASE
     Route: 048
     Dates: start: 20100214, end: 20111029
  9. TPN [Concomitant]
     Indication: CROHN'S DISEASE
     Dates: start: 20090925
  10. LOXOPROFEN SODIUM HYDRATE [Concomitant]
     Indication: PAIN
     Route: 048
     Dates: start: 20090930
  11. LOXOPROFEN SODIUM HYDRATE [Concomitant]
     Indication: PYREXIA

REACTIONS (9)
  - DYSSTASIA [None]
  - GAIT DISTURBANCE [None]
  - SMALL INTESTINAL OBSTRUCTION [None]
  - INTESTINAL STENOSIS [None]
  - ILEAL PERFORATION [None]
  - ABDOMINAL PAIN [None]
  - CONSTIPATION [None]
  - ILEAL ULCER [None]
  - IMPAIRED HEALING [None]
